FAERS Safety Report 8543372 (Version 2)
Quarter: 2013Q3

REPORT INFORMATION
  Report Type: Spontaneous
  Country: US (occurrence: US)
  Receive Date: 20120503
  Receipt Date: 20130802
  Transmission Date: 20140515
  Serious: Yes (Hospitalization, Other)
  Sender: FDA-Public Use
  Company Number: US-AMGEN-USASP2012027281

PATIENT
  Age: 62 Year
  Sex: Female

DRUGS (8)
  1. PROLIA [Suspect]
     Indication: OSTEOPENIA
     Dosage: 60 MG, Q6MO
     Route: 065
     Dates: start: 201108
  2. XANAX [Concomitant]
  3. CELEXA                             /00582602/ [Concomitant]
  4. SYNTHROID [Concomitant]
     Dosage: UNK
  5. CALCIUM WITH VITAMIN D             /00944201/ [Concomitant]
  6. LIPITOR [Concomitant]
  7. OMEPRAZOLE [Concomitant]
  8. DILAUDID HP [Concomitant]
     Dosage: UNK
     Dates: end: 201112

REACTIONS (12)
  - Blood potassium abnormal [Unknown]
  - Pancreatitis acute [Unknown]
  - Constipation [Recovered/Resolved]
  - Diarrhoea [Not Recovered/Not Resolved]
  - Headache [Recovered/Resolved]
  - Malaise [Unknown]
  - Vomiting [Recovered/Resolved]
  - Cystitis [Unknown]
  - Nausea [Recovered/Resolved]
  - Back pain [Not Recovered/Not Resolved]
  - Asthenia [Recovered/Resolved]
  - Pain in extremity [Not Recovered/Not Resolved]
